FAERS Safety Report 12647807 (Version 13)
Quarter: 2017Q4

REPORT INFORMATION
  Report Type: Report from Study
  Country: ES (occurrence: ES)
  Receive Date: 20160812
  Receipt Date: 20171024
  Transmission Date: 20180320
  Serious: Yes (Hospitalization)
  Sender: FDA-Public Use
  Company Number: ES-ROCHE-1778645

PATIENT
  Age: 74 Year
  Sex: Male
  Weight: 60.5 kg

DRUGS (10)
  1. ENALAPRIL [Concomitant]
     Active Substance: ENALAPRIL
     Indication: HYPERTENSION
     Route: 065
     Dates: start: 2014
  2. ATEZOLIZUMAB. [Suspect]
     Active Substance: ATEZOLIZUMAB
     Indication: NON-SMALL CELL LUNG CANCER STAGE IV
     Dosage: DATE OF THE MOST RECENT DOSE PRIOR TO THE OF PNEUMONITIS: 18/APR/2016
     Route: 042
     Dates: start: 20151117
  3. ATEZOLIZUMAB. [Suspect]
     Active Substance: ATEZOLIZUMAB
     Dosage: REINTRODUCTION DOSE.?DATE OF THE MOST RECENT DOSE PRIOR TO RESPIRATORY INSUFFICIENCY: 02/JUL/2016
     Route: 042
     Dates: start: 20160702
  4. OMEPRAZOLE. [Concomitant]
     Active Substance: OMEPRAZOLE
     Indication: PROPHYLAXIS
     Route: 065
     Dates: start: 20160702
  5. CARBOPLATIN. [Suspect]
     Active Substance: CARBOPLATIN
     Indication: NON-SMALL CELL LUNG CANCER STAGE IV
     Dosage: AUC=6 (DOSAGE TAKEN FROM PROTOCOL)?DATE OF THE MOST RECENT DOSE PRIOR TO THE ONSET OF EVENTS: 25/JAN
     Route: 042
     Dates: start: 20151117
  6. ATEZOLIZUMAB. [Suspect]
     Active Substance: ATEZOLIZUMAB
     Dosage: REINTRODUCTION DOSE.?DATE OF THE MOST RECENT DOSE PRIOR TO RESPIRATORY TRACT INFECTION: 06/JUN/2016
     Route: 042
     Dates: start: 20160606
  7. PARACETAMOL [Concomitant]
     Active Substance: ACETAMINOPHEN
     Indication: PROPHYLAXIS
  8. ADIRO [Concomitant]
     Active Substance: ASPIRIN
     Indication: AORTIC ANEURYSM
     Route: 065
     Dates: start: 2010
  9. CEFIXIMA [Concomitant]
     Active Substance: CEFIXIME
     Indication: RESPIRATORY TRACT INFECTION
     Route: 065
     Dates: start: 20160425, end: 20160501
  10. PACLITAXEL. [Suspect]
     Active Substance: PACLITAXEL
     Indication: NON-SMALL CELL LUNG CANCER STAGE IV
     Dosage: (DOSAGE TAKEN FROM PROTOCOL)?DATE OF THE MOST RECENT DOSE PRIOR TO THE ONSET OF EVENTS: 25/JAN/2016
     Route: 042
     Dates: start: 20151117

REACTIONS (2)
  - Pneumonitis [Recovered/Resolved]
  - Respiratory failure [Recovered/Resolved]

NARRATIVE: CASE EVENT DATE: 20160504
